FAERS Safety Report 10482683 (Version 1)
Quarter: 2014Q3

REPORT INFORMATION
  Report Type: Spontaneous
  Country: VE (occurrence: VE)
  Receive Date: 20140929
  Receipt Date: 20140929
  Transmission Date: 20150326
  Serious: Yes (Other)
  Sender: FDA-Public Use
  Company Number: PHHY2014VE127154

PATIENT
  Sex: Male

DRUGS (3)
  1. FENOBARBITAL [Concomitant]
     Active Substance: PHENOBARBITAL
     Indication: CONVULSION
     Dosage: 1 DF, DAILY
  2. TRILEPTAL [Suspect]
     Active Substance: OXCARBAZEPINE
     Indication: ANTIDEPRESSANT THERAPY
     Dosage: 2 DF, DAILY
  3. TRILEPTAL [Suspect]
     Active Substance: OXCARBAZEPINE
     Indication: ANTIDEPRESSANT THERAPY
     Dosage: 12 %, UNK

REACTIONS (4)
  - Malaise [Unknown]
  - Petit mal epilepsy [Unknown]
  - Drug ineffective [Unknown]
  - Convulsion [Unknown]
